FAERS Safety Report 11794850 (Version 3)
Quarter: 2015Q4

REPORT INFORMATION
  Report Type: Spontaneous
  Country: US (occurrence: US)
  Receive Date: 20151202
  Receipt Date: 20151230
  Transmission Date: 20160305
  Serious: Yes (Other)
  Sender: FDA-Public Use
  Company Number: US-BAYER-2015-474660

PATIENT
  Age: 33 Year
  Sex: Female
  Weight: 54.42 kg

DRUGS (3)
  1. MOTRIN [Concomitant]
     Active Substance: IBUPROFEN
     Dosage: UNK
     Route: 048
     Dates: start: 2015
  2. MIRENA [Suspect]
     Active Substance: LEVONORGESTREL
     Indication: CONTRACEPTION
     Dosage: 20 MCG/24HR, CONT
     Route: 015
     Dates: start: 20151118, end: 20151119
  3. CYTOTEC [Concomitant]
     Active Substance: MISOPROSTOL
     Dosage: UNK
     Route: 048
     Dates: start: 2015

REACTIONS (3)
  - Abdominal pain lower [Recovered/Resolved]
  - Genital haemorrhage [Recovered/Resolved]
  - Embedded device [Recovered/Resolved]

NARRATIVE: CASE EVENT DATE: 201511
